FAERS Safety Report 5234570-0 (Version None)
Quarter: 2007Q1

REPORT INFORMATION
  Report Type: 
  Country: None (occurrence: None)
  Receive Date: 20070209
  Receipt Date: 20070202
  Transmission Date: 20070707
  Serious: Yes (Death)
  Sender: FDA-Public Use
  Company Number: US-PURDUE-USA_2007_0026402

PATIENT
  Age: 42 Year
  Sex: Male

DRUGS (7)
  1. OXYCODONE HCL [Suspect]
     Indication: DRUG USE FOR UNKNOWN INDICATION
     Dosage: UNK UNK, UNK
     Route: 065
  2. XANAX [Suspect]
     Indication: DRUG USE FOR UNKNOWN INDICATION
     Dosage: UNK UNK, UNK
     Route: 065
  3. CHLORDIAZEPOXIDE [Suspect]
     Indication: DRUG USE FOR UNKNOWN INDICATION
     Dosage: UNK UNK, UNK
     Route: 065
  4. DIAZEPAM [Suspect]
     Indication: DRUG USE FOR UNKNOWN INDICATION
     Dosage: UNK UNK, UNK
     Route: 065
  5. ALCOHOL [Suspect]
     Indication: ALCOHOL USE
     Dosage: UNK UNK, UNK
     Route: 065
  6. HYDROMORPHONE HCL (SIMILAR TO NDA 21-044) [Suspect]
     Indication: DRUG USE FOR UNKNOWN INDICATION
     Dosage: UNK UNK, UNK
     Route: 065
  7. OXYMORPHONE [Suspect]
     Indication: DRUG USE FOR UNKNOWN INDICATION
     Dosage: UNK UNK, UNK
     Route: 065

REACTIONS (1)
  - DEATH [None]
